FAERS Safety Report 6952557-4 (Version None)
Quarter: 2010Q3

REPORT INFORMATION
  Report Type: 
  Country: None (occurrence: None)
  Receive Date: 20100829
  Receipt Date: 20100510
  Transmission Date: 20110219
  Serious: No
  Sender: FDA-Public Use
  Company Number: US-ABBOTT-10P-163-0643146-00

PATIENT
  Sex: Male
  Weight: 103.97 kg

DRUGS (5)
  1. NIASPAN [Suspect]
     Indication: PROPHYLAXIS
     Dosage: AT BEDTIME
  2. NIASPAN [Suspect]
     Indication: MYOCARDIAL INFARCTION
  3. ZOCOR [Concomitant]
     Indication: PRODUCT USED FOR UNKNOWN INDICATION
  4. BLOOD PRESSURE MEDICATION [Concomitant]
     Indication: BLOOD PRESSURE
  5. TYLENOL-500 [Concomitant]
     Indication: PRODUCT USED FOR UNKNOWN INDICATION

REACTIONS (1)
  - FLUSHING [None]
